FAERS Safety Report 9130784 (Version 1)
Quarter: 2013Q1

REPORT INFORMATION
  Report Type: Spontaneous
  Country: US (occurrence: US)
  Receive Date: 20130301
  Receipt Date: 20130301
  Transmission Date: 20140127
  Serious: Yes (Other)
  Sender: FDA-Public Use
  Company Number: PHEH2013US004844

PATIENT
  Sex: Female
  Weight: 124 kg

DRUGS (1)
  1. EXJADE [Suspect]
     Dosage: 2 DF, DAILY (COMPLETELY DISSOLVE IN LIQUID AND TAKE BY MOUTH)
     Route: 048

REACTIONS (1)
  - Convulsion [Unknown]
